FAERS Safety Report 10448874 (Version 2)
Quarter: 2015Q3

REPORT INFORMATION
  Report Type: Report from Study
  Country: US (occurrence: US)
  Receive Date: 20140912
  Receipt Date: 20150916
  Transmission Date: 20151125
  Serious: No
  Sender: FDA-Public Use
  Company Number: US-BIOGENIDEC-2014BI090413

PATIENT
  Sex: Female

DRUGS (9)
  1. DHA [Concomitant]
     Active Substance: DIETARY SUPPLEMENT
  2. FOLIC ACID. [Concomitant]
     Active Substance: FOLIC ACID
  3. BACLOFEN. [Concomitant]
     Active Substance: BACLOFEN
  4. KEFLEX [Concomitant]
     Active Substance: CEPHALEXIN
  5. VITAMIN B12 [Concomitant]
     Active Substance: CYANOCOBALAMIN
  6. VITAMIN D [Concomitant]
     Active Substance: CHOLECALCIFEROL
  7. TECFIDERA [Suspect]
     Active Substance: DIMETHYL FUMARATE
     Indication: RELAPSING-REMITTING MULTIPLE SCLEROSIS
     Route: 048
     Dates: start: 20140618
  8. TECFIDERA [Suspect]
     Active Substance: DIMETHYL FUMARATE
     Indication: RELAPSING-REMITTING MULTIPLE SCLEROSIS
  9. LEVOTHYROXINE. [Concomitant]
     Active Substance: LEVOTHYROXINE

REACTIONS (1)
  - Weight increased [Unknown]
